FAERS Safety Report 12901878 (Version 3)
Quarter: 2016Q4

REPORT INFORMATION
  Report Type: Spontaneous
  Country: US (occurrence: US)
  Receive Date: 20161102
  Receipt Date: 20161223
  Transmission Date: 20170207
  Serious: Yes (Death, Hospitalization, Other)
  Sender: FDA-Public Use
  Company Number: US-TAIHO ONCOLOGY INC-EU-2016-02793

PATIENT
  Age: 55 Year
  Sex: Female
  Weight: 58.8 kg

DRUGS (13)
  1. COZAAR [Concomitant]
     Active Substance: LOSARTAN POTASSIUM
     Dosage: NIGHTLY
     Route: 048
  2. SENOKOT-S [Concomitant]
     Active Substance: DOCUSATE SODIUM\SENNOSIDES
     Route: 048
  3. OMEGA 3 [Concomitant]
     Active Substance: OMEGA-3 FATTY ACIDS
     Dosage: NI
  4. MIRALAX [Concomitant]
     Active Substance: POLYETHYLENE GLYCOL 3350
     Dosage: PRN
     Route: 048
  5. VENTOLIN [Concomitant]
     Active Substance: ALBUTEROL SULFATE
     Dosage: PRN
  6. METOPROLOL. [Concomitant]
     Active Substance: METOPROLOL
     Dosage: QAM
     Route: 048
  7. BENADRYL [Concomitant]
     Active Substance: DIPHENHYDRAMINE HYDROCHLORIDE
     Dosage: NI
  8. TOPROL XL [Concomitant]
     Active Substance: METOPROLOL SUCCINATE
     Dosage: QAM AC
     Route: 048
  9. HEPARIN SODIUM. [Concomitant]
     Active Substance: HEPARIN SODIUM
     Route: 058
  10. DILAUDID [Concomitant]
     Active Substance: HYDROMORPHONE HYDROCHLORIDE
     Dosage: PRN
     Route: 040
  11. AMBIEN [Concomitant]
     Active Substance: ZOLPIDEM TARTRATE
     Dosage: NIGHTLY PRN
     Route: 048
  12. LONSURF [Suspect]
     Active Substance: TIPIRACIL HYDROCHLORIDE\TRIFLURIDINE
     Indication: RECTAL CANCER
     Route: 048
     Dates: start: 20160731
  13. ZOFRAN [Concomitant]
     Active Substance: ONDANSETRON HYDROCHLORIDE
     Dosage: PRN
     Route: 042

REACTIONS (11)
  - Muscular weakness [Unknown]
  - Musculoskeletal chest pain [Unknown]
  - Tachycardia [Unknown]
  - Disease progression [Fatal]
  - Pleural effusion [Unknown]
  - Respiratory failure [Fatal]
  - Pneumothorax [Unknown]
  - Dyspnoea [Unknown]
  - Anaemia [Unknown]
  - Pericardial effusion [Unknown]
  - Depression [Unknown]

NARRATIVE: CASE EVENT DATE: 2016
